FAERS Safety Report 15286365 (Version 2)
Quarter: 2018Q3

REPORT INFORMATION
  Report Type: Spontaneous
  Country: HU (occurrence: HU)
  Receive Date: 20180816
  Receipt Date: 20180828
  Transmission Date: 20181010
  Serious: Yes (Hospitalization, Other)
  Sender: FDA-Public Use
  Company Number: HU-BAYER-2018-150527

PATIENT
  Age: 64 Year
  Sex: Male

DRUGS (27)
  1. STIVARGA [Suspect]
     Active Substance: REGORAFENIB
     Indication: METASTASIS
  2. PERINDOPRIL ARGININE [Concomitant]
     Active Substance: PERINDOPRIL ARGININE
  3. FUROSEMID [Concomitant]
     Active Substance: FUROSEMIDE
  4. NITRO?DUR [Concomitant]
     Active Substance: NITROGLYCERIN
  5. ASPIRIN. [Concomitant]
     Active Substance: ASPIRIN
  6. IMOVANE [Concomitant]
     Active Substance: ZOPICLONE
  7. GLIVEC [Concomitant]
     Active Substance: IMATINIB MESYLATE
  8. SIMETHICONE (DIMETHICONE) [Concomitant]
     Active Substance: DIMETHICONE
  9. PROSTAMOL UNO [Concomitant]
  10. TAG [Concomitant]
  11. VEROSPIRON [Concomitant]
     Active Substance: SPIRONOLACTONE
  12. KALIUM?R [Concomitant]
  13. ATORIS [Concomitant]
     Active Substance: ATORVASTATIN CALCIUM
  14. NOACID [Concomitant]
     Active Substance: ALUMINUM HYDROXIDE
  15. ROCEPHIN [Concomitant]
     Active Substance: CEFTRIAXONE SODIUM
  16. ASA [Concomitant]
     Active Substance: ASPIRIN
  17. CLOPIDOGREL BISULFATE. [Concomitant]
     Active Substance: CLOPIDOGREL BISULFATE
  18. KALDYUM [Concomitant]
     Active Substance: POTASSIUM CHLORIDE
  19. APO?FAMOTIDINE [Concomitant]
     Active Substance: FAMOTIDINE
  20. CEFTRIAXONE. [Concomitant]
     Active Substance: CEFTRIAXONE
     Indication: INFECTION PROPHYLAXIS
  21. MAGNE?B6 [Concomitant]
     Active Substance: MAGNESIUM LACTATE\PYRIDOXINE HYDROCHLORIDE
  22. CONCOR [Concomitant]
     Active Substance: BISOPROLOL FUMARATE
  23. SPIRONOLACTONE. [Concomitant]
     Active Substance: SPIRONOLACTONE
  24. COVEREX AS KOMB [Concomitant]
  25. STIVARGA [Suspect]
     Active Substance: REGORAFENIB
     Indication: GASTROINTESTINAL STROMAL TUMOUR
     Dosage: UNK
     Dates: start: 20160618, end: 20180702
  26. SUTENT [Concomitant]
     Active Substance: SUNITINIB MALATE
  27. VEROSPIRON [Concomitant]
     Active Substance: SPIRONOLACTONE

REACTIONS (18)
  - Peripheral swelling [None]
  - Hyperkalaemia [None]
  - Malaise [None]
  - Left ventricular dysfunction [None]
  - Renal impairment [None]
  - Cardiomegaly [None]
  - Cardiac failure [None]
  - Dyspnoea [None]
  - Pyrexia [None]
  - Viral infection [None]
  - Proteinuria [None]
  - Feeling cold [None]
  - Hypokinesia [None]
  - Cardiomyopathy [None]
  - Aortic arteriosclerosis [None]
  - Blood albumin decreased [None]
  - Myocardial ischaemia [None]
  - Urinary tract infection [None]
